FAERS Safety Report 8187616-4 (Version None)
Quarter: 2012Q1

REPORT INFORMATION
  Report Type: 
  Country: None (occurrence: None)
  Receive Date: 20120306
  Receipt Date: 20120302
  Transmission Date: 20120608
  Serious: No
  Sender: FDA-Public Use
  Company Number: US-BAYER-2011-099495

PATIENT
  Age: 33 Year
  Sex: Female
  Weight: 79.365 kg

DRUGS (3)
  1. MIRENA [Suspect]
     Indication: CONTRACEPTION
     Dosage: 20 MCG/24HR, CONT
     Route: 015
     Dates: start: 20101012, end: 20110908
  2. SYNTHROID [Concomitant]
  3. ZOLOFT [Concomitant]

REACTIONS (1)
  - PREGNANCY WITH CONTRACEPTIVE DEVICE [None]
